FAERS Safety Report 8523388 (Version 2)
Quarter: 2013Q4

REPORT INFORMATION
  Report Type: Spontaneous
  Country: US (occurrence: US)
  Receive Date: 20120420
  Receipt Date: 20131231
  Transmission Date: 20140711
  Serious: Yes (Other)
  Sender: FDA-Public Use
  Company Number: US-BAYER-2012-037879

PATIENT
  Age: 37 Year
  Sex: Female
  Weight: 79.82 kg

DRUGS (4)
  1. YAZ [Suspect]
     Dosage: UNK
     Dates: start: 200708, end: 200912
  2. CIPRO [Concomitant]
     Dosage: 500 MG, UNK
     Route: 048
  3. PROAIR HFA [Concomitant]
     Dosage: 90 MCG/24HR, UNK
  4. NEXIUM [Concomitant]
     Dosage: 20 MG, UNK
     Route: 048

REACTIONS (7)
  - Cholecystectomy [None]
  - Cholecystitis chronic [None]
  - Emotional distress [None]
  - Depression [None]
  - Fear of death [None]
  - Nervousness [None]
  - Injury [None]
